FAERS Safety Report 6430335-2 (Version None)
Quarter: 2009Q4

REPORT INFORMATION
  Report Type: 
  Country: None (occurrence: None)
  Receive Date: 20091106
  Receipt Date: 20091006
  Transmission Date: 20100525
  Serious: No
  Sender: FDA-Public Use
  Company Number: US-BAYER-200838826NA

PATIENT
  Age: 50 Year
  Sex: Female

DRUGS (1)
  1. CAMPATH [Suspect]
     Indication: CHRONIC LYMPHOCYTIC LEUKAEMIA
     Route: 042
     Dates: end: 20080501

REACTIONS (1)
  - ALOPECIA [None]
